FAERS Safety Report 13764836 (Version 3)
Quarter: 2017Q4

REPORT INFORMATION
  Report Type: Report from Study
  Country: NO (occurrence: NO)
  Receive Date: 20170718
  Receipt Date: 20171013
  Transmission Date: 20180320
  Serious: Yes (Death, Life-Threatening, Hospitalization, Other)
  Sender: FDA-Public Use
  Company Number: NO-ENDO PHARMACEUTICALS INC-2017-003534

PATIENT
  Age: 56 Year
  Sex: Female

DRUGS (8)
  1. DEXAMETHASONE. [Suspect]
     Active Substance: DEXAMETHASONE
     Dosage: UNK,UNK, UNKNOWN
     Route: 065
     Dates: start: 20170425, end: 20170516
  2. POMALIDOMIDE [Suspect]
     Active Substance: POMALIDOMIDE
     Dosage: UNK,UNK, UNKNOWN
     Route: 048
     Dates: start: 20170213, end: 20170312
  3. POMALIDOMIDE [Suspect]
     Active Substance: POMALIDOMIDE
     Indication: PLASMA CELL MYELOMA
     Dosage: 4 MG, UNKNOWN
     Route: 048
     Dates: start: 20170123, end: 20170212
  4. POMALIDOMIDE [Suspect]
     Active Substance: POMALIDOMIDE
     Dosage: 3 MG, UNKNOWN
     Route: 048
     Dates: start: 20170313, end: 20170331
  5. POMALIDOMIDE [Suspect]
     Active Substance: POMALIDOMIDE
     Dosage: 2 MG, UNKNOWN
     Route: 048
     Dates: start: 20170529, end: 2017
  6. POMALIDOMIDE [Suspect]
     Active Substance: POMALIDOMIDE
     Dosage: UNK,UNK, UNKNOWN
     Route: 048
     Dates: start: 20170425, end: 20170516
  7. DEXAMETHASONE. [Suspect]
     Active Substance: DEXAMETHASONE
     Indication: PLASMA CELL MYELOMA
     Dosage: 20 MG, UNKNOWN
     Route: 065
     Dates: start: 20170123, end: 20170206
  8. DEXAMETHASONE. [Suspect]
     Active Substance: DEXAMETHASONE
     Dosage: 20 MG, UNKNOWN
     Route: 048
     Dates: start: 20170313

REACTIONS (4)
  - Neutropenia [Recovered/Resolved]
  - Dehydration [Recovered/Resolved]
  - Venous injury [Recovered/Resolved]
  - Anaemia [Recovered/Resolved]

NARRATIVE: CASE EVENT DATE: 2017
